FAERS Safety Report 9168735 (Version 2)
Quarter: 2013Q2

REPORT INFORMATION
  Report Type: Spontaneous
  Country: US (occurrence: US)
  Receive Date: 20130318
  Receipt Date: 20130620
  Transmission Date: 20140414
  Serious: Yes (Other)
  Sender: FDA-Public Use
  Company Number: US-PFIZER INC-2013087678

PATIENT
  Age: 58 Year
  Sex: Female
  Weight: 118 kg

DRUGS (18)
  1. NICOTROL NASAL SPRAY [Suspect]
     Indication: SMOKING CESSATION THERAPY
     Dosage: UNK, 1-2 SPRAYS PER HOUR
     Route: 055
     Dates: start: 20130310, end: 20130311
  2. HYDROCODONE [Concomitant]
     Indication: PAIN
     Dosage: 7.5 MG, 2X/DAY
  3. OMEPRAZOLE [Concomitant]
     Indication: GASTRIC DISORDER
     Dosage: 20 MG, AS NEEDED
     Route: 048
  4. OMEPRAZOLE [Concomitant]
     Dosage: 20 MG, 1X/DAY
     Route: 048
  5. ASPIRIN [Concomitant]
     Dosage: 325 MG, 1X/DAY
  6. PROAIR HFA [Concomitant]
     Dosage: UNK, 2 PUFFS EVERY 4 HOURS AS NEEDED
     Dates: start: 20111130
  7. TRIAMTERENE-HCTZ [Concomitant]
     Dosage: TRIAMTERENE 37.5 MG/ HYDROCHLOROTHIAZIDE 25 MG, 1X/DAY
     Route: 048
  8. HYDRALAZINE HYDROCHLORIDE [Concomitant]
     Dosage: 50 MG, 2X/DAY
     Route: 048
  9. GABAPENTIN [Concomitant]
     Dosage: 600 MG, 3X/DAY
     Route: 048
     Dates: start: 20120127
  10. GLIPIZIDE XR [Concomitant]
     Dosage: 20 MG, 1X/DAY
     Route: 048
  11. COZAAR [Concomitant]
     Dosage: 100 MG, 1X/DAY
     Route: 048
  12. HYDROCODONE-ACETAMINOPHEN [Concomitant]
     Dosage: HYDROCODONE 7.5 MG/ ACETAMINOPHEN 500 MG, 2X/DAY (AS NEEDED)
     Dates: start: 20130225
  13. ALPRAZOLAM [Concomitant]
     Dosage: 0.5 MG, 3X/DAY
     Route: 048
  14. LIPITOR [Concomitant]
     Dosage: 40 MG, 1X/DAY
     Route: 048
     Dates: start: 20130308
  15. CATAPRES [Concomitant]
     Dosage: 0.2 MG, 3X/DAY
     Route: 048
  16. NORVASC [Concomitant]
     Dosage: 10 MG, 1X/DAY
     Route: 048
  17. ALBUTEROL SULFATE [Concomitant]
     Dosage: UNK, 1 VIAL INHALATION EVERY 4 HOURS AS NEEDED
     Route: 045
     Dates: start: 20130308
  18. SPIRIVA HANDIHALER [Concomitant]
     Dosage: 18 UG, 1X/DAY (1 CAPSULE 2 INHALATIONS 1 TIME A DAY)
     Route: 045
     Dates: start: 20130308

REACTIONS (4)
  - Mydriasis [Not Recovered/Not Resolved]
  - Ocular hyperaemia [Not Recovered/Not Resolved]
  - Conjunctival haemorrhage [Recovered/Resolved]
  - Conjunctivitis allergic [Recovered/Resolved]
